FAERS Safety Report 9280346 (Version 2)
Quarter: 2013Q1

REPORT INFORMATION
  Report Type: Spontaneous
  Country: US (occurrence: None)
  Receive Date: 20130211
  Receipt Date: 20130215
  Transmission Date: 20140127
  Serious: Yes (Hospitalization, Other)
  Sender: FDA-Public Use
  Company Number: 2013-00038

PATIENT
  Age: 86 Year
  Sex: Female
  Weight: 58.97 kg

DRUGS (1)
  1. ZICAM COLD REMEDY RAPIDMELTS [Suspect]
     Indication: NASOPHARYNGITIS
     Dosage: 1 RAPIDMELT
     Dates: start: 20130113

REACTIONS (6)
  - Confusional state [None]
  - Fall [None]
  - Cerebrovascular accident [None]
  - Nasopharyngitis [None]
  - Urinary tract infection [None]
  - Bronchitis [None]
